FAERS Safety Report 24882269 (Version 1)
Quarter: 2025Q1

REPORT INFORMATION
  Report Type: Spontaneous
  Country: US (occurrence: US)
  Receive Date: 20250124
  Receipt Date: 20250124
  Transmission Date: 20250408
  Serious: Yes (Other)
  Sender: BRISTOL-MYERS SQUIBB COMPANY
  Company Number: US-BRISTOL-MYERS SQUIBB COMPANY-2025-008056

PATIENT
  Age: 74 Year
  Sex: Male

DRUGS (2)
  1. LENALIDOMIDE [Suspect]
     Active Substance: LENALIDOMIDE
     Indication: Plasma cell myeloma
     Dates: end: 202408
  2. LENALIDOMIDE [Suspect]
     Active Substance: LENALIDOMIDE
     Dosage: FREQUENCY: TAKE 1 CAPSULE BY MOUTH EVERY DAY ON DAYS 1 -21 OF EACH 28-DAY CYCLE.
     Route: 048
     Dates: start: 202408

REACTIONS (10)
  - Back pain [Unknown]
  - Abdominal discomfort [Unknown]
  - Diarrhoea [Unknown]
  - Barrett^s oesophagus [Unknown]
  - Decreased appetite [Unknown]
  - Rash [Unknown]
  - Peripheral swelling [Unknown]
  - Joint swelling [Unknown]
  - Back disorder [Unknown]
  - Nasopharyngitis [Unknown]
